FAERS Safety Report 7427874-4 (Version None)
Quarter: 2011Q2

REPORT INFORMATION
  Report Type: 
  Country: None (occurrence: None)
  Receive Date: 20110421
  Receipt Date: 20110408
  Transmission Date: 20111010
  Serious: Yes (Other)
  Sender: FDA-Public Use
  Company Number: DE-ELI_LILLY_AND_COMPANY-DE201104002238

PATIENT
  Sex: Female
  Weight: 42 kg

DRUGS (4)
  1. OMEPRAZOLE [Concomitant]
     Dosage: UNK, UNKNOWN
     Route: 065
  2. ANTIHYPERTENSIVES [Concomitant]
     Indication: BLOOD PRESSURE
     Dosage: UNK, UNKNOWN
     Route: 065
  3. FORTEO [Suspect]
     Indication: OSTEOPOROSIS
     Dosage: UNK, QD
     Route: 058
     Dates: start: 20100221
  4. DICLAC                             /00372302/ [Concomitant]
     Dosage: 75 UNK, UNKNOWN
     Route: 065

REACTIONS (5)
  - WEIGHT DECREASED [None]
  - HIP SURGERY [None]
  - FATIGUE [None]
  - ASTHENIA [None]
  - DECREASED APPETITE [None]
